FAERS Safety Report 5268849-3 (Version None)
Quarter: 2007Q1

REPORT INFORMATION
  Report Type: 
  Country: None (occurrence: None)
  Receive Date: 20070313
  Receipt Date: 20070221
  Transmission Date: 20070707
  Serious: Yes (Hospitalization)
  Sender: FDA-Public Use
  Company Number: 2007SP004048

PATIENT
  Age: 54 Year
  Sex: Male

DRUGS (2)
  1. RINDERON  (BEATMETHASONE SODIUM PHOSPHATE) (BEATMETHASONE SODIUM PHOSP [Suspect]
     Indication: PYODERMA
     Dosage: 2 MG; IV
     Route: 042
     Dates: start: 20030101
  2. PREDNISOLONE [Suspect]
     Indication: PYODERMA
     Dosage: 40 MG; QD; PO
     Route: 048

REACTIONS (8)
  - BACTERIAL INFECTION [None]
  - CONDITION AGGRAVATED [None]
  - FATIGUE [None]
  - PENILE SWELLING [None]
  - PYODERMA [None]
  - REFUSAL OF TREATMENT BY PATIENT [None]
  - SCROTAL SWELLING [None]
  - SOMNOLENCE [None]
